FAERS Safety Report 21674297 (Version 1)
Quarter: 2022Q4

REPORT INFORMATION
  Report Type: Spontaneous
  Country: FR (occurrence: FR)
  Receive Date: 20221202
  Receipt Date: 20221202
  Transmission Date: 20230112
  Serious: Yes (Life-Threatening, Hospitalization)
  Sender: FDA-Public Use
  Company Number: FR-MYLANLABS-2022M1134886

PATIENT
  Age: 31 Year
  Sex: Male

DRUGS (4)
  1. ALBUTEROL [Suspect]
     Active Substance: ALBUTEROL
     Indication: Asthma
     Dosage: UNK; NEBULISER; RESPIRATORY (INHALATION)
  2. METHYLPREDNISOLONE [Suspect]
     Active Substance: METHYLPREDNISOLONE
     Indication: Asthma
     Dosage: 2 MILLIGRAM/KILOGRAM, QD; INTRAVENOUS (NOT SPECIFIED)
     Route: 042
     Dates: start: 20211211
  3. METHYLPREDNISOLONE [Suspect]
     Active Substance: METHYLPREDNISOLONE
     Dosage: 1 MILLIGRAM/KILOGRAM, BID; INTRAVENOUS (NOT SPECIFIED)
     Route: 042
  4. METHYLPREDNISOLONE [Suspect]
     Active Substance: METHYLPREDNISOLONE
     Dosage: 500 MILLIGRAM, QD; INTRAVENOUS (NOT SPECIFIED)
     Route: 042
     Dates: start: 20211223

REACTIONS (1)
  - Drug ineffective [Unknown]
